FAERS Safety Report 7851289-8 (Version None)
Quarter: 2011Q4

REPORT INFORMATION
  Report Type: 
  Country: None (occurrence: None)
  Receive Date: 20111026
  Receipt Date: 20111018
  Transmission Date: 20120403
  Serious: Yes (Death, Hospitalization, Other)
  Sender: FDA-Public Use
  Company Number: US-BAYER-200939890NA

PATIENT
  Age: 67 Year
  Sex: Male
  Weight: 79.365 kg

DRUGS (17)
  1. ADALAT CC [Concomitant]
     Indication: PRODUCT USED FOR UNKNOWN INDICATION
     Dosage: 60 MG, QD
     Route: 048
  2. ACETYLSALICYLIC ACID SRT [Concomitant]
     Indication: PRODUCT USED FOR UNKNOWN INDICATION
     Dosage: UNK
     Route: 048
     Dates: start: 20040905
  3. HEPARIN SULFATE [Concomitant]
     Indication: PRODUCT USED FOR UNKNOWN INDICATION
     Dosage: 10000 U, UNK
     Dates: start: 20040913
  4. PROTAMINE SULFATE [Concomitant]
     Indication: PRODUCT USED FOR UNKNOWN INDICATION
  5. TRASYLOL [Suspect]
     Indication: CORONARY ARTERY BYPASS
     Dosage: 1 ML, TEST DOSE, 200 ML LOADING DOSE, 50 ML/HR INFUSION
     Route: 042
     Dates: start: 20040913, end: 20040913
  6. NITROSTAT [Concomitant]
     Indication: PRODUCT USED FOR UNKNOWN INDICATION
     Dosage: UNK
     Dates: start: 20040905
  7. PLAVIX [Concomitant]
     Dosage: 75 MG, UNK
     Dates: start: 20040908
  8. XANAX [Concomitant]
     Dosage: AS NEEDED
     Route: 048
  9. ALBUMIN (HUMAN) [Concomitant]
     Dosage: 12.5 G, UNK
     Route: 042
     Dates: start: 20040913
  10. LOPRESSOR [Concomitant]
  11. BREVIBLOCK [Concomitant]
     Dosage: 20
     Route: 042
     Dates: start: 20040913
  12. LASIX [Concomitant]
     Dosage: 10 MG, UNK
     Route: 042
     Dates: start: 20040913
  13. ANCEF [Concomitant]
     Dosage: 2 G, UNK
     Route: 042
  14. HEPARIN [Concomitant]
     Dosage: 5000 U, UNK
     Route: 042
     Dates: start: 20040913
  15. PREVPAC [Concomitant]
     Indication: PRODUCT USED FOR UNKNOWN INDICATION
     Dosage: TWICE PER DAY TIMES TEN DAYS
     Route: 048
     Dates: start: 20040907
  16. LIPITOR [Concomitant]
     Dosage: 80 MG, ONCE DAILY
     Route: 048
  17. NITROGLYCERIN [Concomitant]

REACTIONS (13)
  - RENAL IMPAIRMENT [None]
  - STRESS [None]
  - DEATH [None]
  - EMOTIONAL DISTRESS [None]
  - FEAR [None]
  - MULTI-ORGAN FAILURE [None]
  - RENAL INJURY [None]
  - ANXIETY [None]
  - ANHEDONIA [None]
  - RENAL FAILURE [None]
  - UNEVALUABLE EVENT [None]
  - PAIN [None]
  - INJURY [None]
